FAERS Safety Report 11113581 (Version 2)
Quarter: 2016Q1

REPORT INFORMATION
  Report Type: Spontaneous
  Country: BR (occurrence: BR)
  Receive Date: 20150514
  Receipt Date: 20160322
  Transmission Date: 20160525
  Serious: Yes (Death, Hospitalization, Other)
  Sender: FDA-Public Use
  Company Number: BR-JNJFOC-20150422926

PATIENT
  Age: 70 Year
  Sex: Male

DRUGS (4)
  1. REMICADE [Suspect]
     Active Substance: INFLIXIMAB
     Indication: CROHN^S DISEASE
     Dosage: 1X100MG VIAL MS BRASIL??411656
     Route: 042
     Dates: start: 20140704
  2. REMICADE [Suspect]
     Active Substance: INFLIXIMAB
     Indication: CROHN^S DISEASE
     Dosage: 1X100MG VIAL MS BRASIL??411656
     Route: 042
     Dates: start: 20130724
  3. REMICADE [Suspect]
     Active Substance: INFLIXIMAB
     Indication: CROHN^S DISEASE
     Route: 042
     Dates: start: 20150223, end: 20150424
  4. AZATHIOPRINE. [Concomitant]
     Active Substance: AZATHIOPRINE
     Route: 065
     Dates: start: 201408

REACTIONS (15)
  - Gastrointestinal infection [Unknown]
  - Intestinal stenosis [Unknown]
  - Malaise [Unknown]
  - Aphonia [Unknown]
  - Bedridden [Recovered/Resolved]
  - Anaemia [Unknown]
  - Abnormal faeces [Unknown]
  - Haemorrhage [Unknown]
  - Faecaloma [Unknown]
  - Drug ineffective [Unknown]
  - Asthenia [Unknown]
  - Death [Fatal]
  - Inappropriate schedule of drug administration [Unknown]
  - Diarrhoea [Unknown]
  - Pyrexia [Unknown]

NARRATIVE: CASE EVENT DATE: 20150224
